FAERS Safety Report 5156917-6 (Version None)
Quarter: 2006Q4

REPORT INFORMATION
  Report Type: 
  Country: None (occurrence: None)
  Receive Date: 20060918
  Receipt Date: 20051208
  Transmission Date: 20070319
  Serious: Yes (Other)
  Sender: FDA-Public Use
  Company Number: US-JNJFOC-20051202818

PATIENT
  Age: 42 Year
  Sex: Male

DRUGS (3)
  1. TOPAMAX [Suspect]
     Indication: EPILEPSY
     Dosage: 300 MG 1 IN 1 DAY ORAL
     Route: 048
     Dates: start: 20051207
  2. KEPRA (LEVITERACETAM) [Concomitant]
  3. IMITREX [Concomitant]

REACTIONS (10)
  - AGGRESSION [None]
  - ANHIDROSIS [None]
  - CONSTIPATION [None]
  - CONVULSION [None]
  - DIARRHOEA [None]
  - DRY MOUTH [None]
  - GINGIVAL BLEEDING [None]
  - HYPERTHERMIA [None]
  - MIGRAINE [None]
  - NERVOUSNESS [None]
